FAERS Safety Report 7934022-0 (Version None)
Quarter: 2011Q4

REPORT INFORMATION
  Report Type: 
  Country: None (occurrence: None)
  Receive Date: 20111122
  Receipt Date: 20111110
  Transmission Date: 20120403
  Serious: Yes (Hospitalization)
  Sender: FDA-Public Use
  Company Number: GR-ELI_LILLY_AND_COMPANY-GR201104004222

PATIENT
  Age: 36 Year
  Sex: Male
  Weight: 85 kg

DRUGS (1)
  1. FLUOXETINE [Suspect]
     Indication: PANIC DISORDER WITH AGORAPHOBIA
     Dosage: 20 MG, QD
     Route: 048
     Dates: start: 20090301, end: 20110810

REACTIONS (1)
  - PULMONARY TUBERCULOSIS [None]
